FAERS Safety Report 7039659-1 (Version None)
Quarter: 2010Q4

REPORT INFORMATION
  Report Type: 
  Country: None (occurrence: None)
  Receive Date: 20101012
  Receipt Date: 20101006
  Transmission Date: 20110411
  Serious: Yes (Other)
  Sender: FDA-Public Use
  Company Number: B0675510A

PATIENT
  Sex: Male
  Weight: 97 kg

DRUGS (8)
  1. ROSIGLITAZONE [Suspect]
     Route: 048
     Dates: start: 20011212, end: 20080826
  2. ROSIGLITAZONE [Concomitant]
     Dosage: 8MG PER DAY
     Route: 048
     Dates: start: 20080827, end: 20100101
  3. METFORMIN [Concomitant]
     Dosage: 850MG THREE TIMES PER DAY
     Route: 048
     Dates: start: 20081201, end: 20100101
  4. GLIMEPIRIDE [Concomitant]
     Dosage: 2MG TWICE PER DAY
     Route: 048
     Dates: start: 20080827, end: 20100101
  5. RAMIPRIL [Concomitant]
     Dosage: 5MG PER DAY
     Route: 048
     Dates: start: 20080827
  6. HYDROCHLORTHIAZID [Concomitant]
     Dosage: 25MG PER DAY
     Route: 048
     Dates: start: 20080827
  7. SIMVASTATIN [Concomitant]
     Dosage: 40MG PER DAY
     Route: 048
     Dates: start: 20090309
  8. ASPIRIN [Concomitant]
     Dosage: 75MG PER DAY
     Route: 048
     Dates: start: 20090806

REACTIONS (2)
  - RECTAL HAEMORRHAGE [None]
  - T-CELL LYMPHOMA [None]
